FAERS Safety Report 21087586 (Version 1)
Quarter: 2022Q3

REPORT INFORMATION
  Report Type: Spontaneous
  Country: US (occurrence: US)
  Receive Date: 20220715
  Receipt Date: 20220715
  Transmission Date: 20221026
  Serious: No
  Sender: FDA-Public Use
  Company Number: US-ORGANON-O2207USA001003

PATIENT
  Sex: Female

DRUGS (1)
  1. NEXPLANON [Suspect]
     Active Substance: ETONOGESTREL
     Indication: Contraception
     Dosage: 1 IMPLANT (FOR ABOUT 2.5 YEARS)
     Route: 059
     Dates: start: 2019

REACTIONS (5)
  - Pregnancy test positive [Unknown]
  - Pregnancy test negative [Unknown]
  - Feeling abnormal [Not Recovered/Not Resolved]
  - Infertility [Unknown]
  - Dysmenorrhoea [Unknown]

NARRATIVE: CASE EVENT DATE: 20220101
